FAERS Safety Report 9857198 (Version 1)
Quarter: 2014Q1

REPORT INFORMATION
  Report Type: Spontaneous
  Country: US (occurrence: US)
  Receive Date: 20140130
  Receipt Date: 20140130
  Transmission Date: 20141002
  Serious: Yes (Hospitalization, Other)
  Sender: FDA-Public Use
  Company Number: US-ACTAVIS-2014-00949

PATIENT
  Age: 65 Year
  Sex: Male

DRUGS (4)
  1. TEMOZOLOMIDE [Suspect]
     Indication: GLIOBLASTOMA MULTIFORME
     Dosage: 200 MG, DAILY
     Route: 048
  2. LEVETIRACETAM [Suspect]
     Indication: CONVULSION PROPHYLAXIS
     Dosage: UNK
     Route: 065
  3. CEFALEXIN (UNKNOWN) [Suspect]
     Indication: CELLULITIS
     Dosage: UNK
     Route: 065
  4. CIPROFLOXACIN HYDROCHLORIDE (WATSON LABORATORIES) [Suspect]
     Indication: CELLULITIS
     Dosage: UNK
     Route: 065

REACTIONS (5)
  - Cholestasis [Recovering/Resolving]
  - Jaundice [Recovering/Resolving]
  - Vanishing bile duct syndrome [Unknown]
  - Hepatic steatosis [Unknown]
  - Hepatic fibrosis [Unknown]
